FAERS Safety Report 7631631-3 (Version None)
Quarter: 2011Q3

REPORT INFORMATION
  Report Type: 
  Country: None (occurrence: None)
  Receive Date: 20110725
  Receipt Date: 20110311
  Transmission Date: 20111222
  Serious: Yes (Other)
  Sender: FDA-Public Use
  Company Number: US-BRISTOL-MYERS SQUIBB COMPANY-15516768

PATIENT
  Age: 32 Year
  Sex: Female

DRUGS (1)
  1. COUMADIN [Suspect]
     Indication: THROMBOSIS
     Dosage: THERAPY STRTED ON 27/28DEC WAS OFF THE MEDICAITON FOR 5 DAYS

REACTIONS (7)
  - VAGINAL HAEMORRHAGE [None]
  - HAEMOGLOBIN DECREASED [None]
  - DIZZINESS [None]
  - RECTAL HAEMORRHAGE [None]
  - DRUG INEFFECTIVE [None]
  - BLOOD IRON DECREASED [None]
  - NAUSEA [None]
